FAERS Safety Report 4837202-6 (Version None)
Quarter: 2005Q4

REPORT INFORMATION
  Report Type: 
  Country: None (occurrence: None)
  Receive Date: 20051122
  Receipt Date: 20051107
  Transmission Date: 20060501
  Serious: Yes (Other)
  Sender: FDA-Public Use
  Company Number: 05-000869

PATIENT
  Age: 43 Year
  Sex: Female
  Weight: 59 kg

DRUGS (3)
  1. ESTROSTEP FE (ETHINYLESTRADIOL, NORETHINDRONE ACETATE) TABLET [Suspect]
     Indication: MENOPAUSAL SYMPTOMS
     Dosage: 20-30-35/1000UG QD ORAL
     Route: 048
     Dates: start: 20051001, end: 20051106
  2. PREVACID(LANSORPAZOLE) [Concomitant]
  3. ANTIBIOTICS [Concomitant]

REACTIONS (2)
  - BLOOD GASES ABNORMAL [None]
  - DYSPNOEA [None]
